FAERS Safety Report 9392115 (Version 1)
Quarter: 2013Q3

REPORT INFORMATION
  Report Type: Report from Study
  Country: JP (occurrence: JP)
  Receive Date: 20130709
  Receipt Date: 20130709
  Transmission Date: 20140515
  Serious: Yes (Other)
  Sender: FDA-Public Use
  Company Number: JP-009507513-1307JPN003485

PATIENT
  Age: 66 Year
  Sex: Female
  Weight: 56 kg

DRUGS (14)
  1. PEGINTRON [Suspect]
     Indication: CHRONIC HEPATITIS C
     Dosage: 1.5 MICROGRAM PER KILOGRAM, QW
     Route: 058
     Dates: start: 20120404, end: 20120523
  2. PEGINTRON [Suspect]
     Dosage: 1.0 MICROGRAM PER KILOGRAM, QW
     Route: 058
     Dates: start: 20120704, end: 20120801
  3. PEGINTRON [Suspect]
     Dosage: 0.7 MICROGRAM PER KILOGRAM, QW
     Route: 058
     Dates: start: 20120808
  4. REBETOL [Suspect]
     Indication: CHRONIC HEPATITIS C
     Dosage: 600 MG, QD
     Route: 048
     Dates: start: 20120404, end: 20120508
  5. REBETOL [Suspect]
     Dosage: 400 MG, QD
     Route: 048
     Dates: start: 20120509, end: 20120516
  6. REBETOL [Suspect]
     Dosage: 200 MG, QD
     Route: 048
     Dates: start: 20120517, end: 20120523
  7. REBETOL [Suspect]
     Dosage: 200 MG, QD
     Route: 048
     Dates: start: 20120704, end: 20120717
  8. REBETOL [Suspect]
     Dosage: 400 MG, QD
     Route: 048
     Dates: start: 20120718
  9. TELAVIC [Suspect]
     Indication: CHRONIC HEPATITIS C
     Dosage: 1500 MG, QD
     Route: 048
     Dates: start: 20120404, end: 20120523
  10. PARIET [Suspect]
     Indication: PROPHYLAXIS
     Dosage: 10 MG, QD
     Route: 048
     Dates: start: 20120516, end: 20120517
  11. REBAMIPIDE [Concomitant]
     Indication: PROPHYLAXIS
     Dosage: UNK, PRN
     Route: 048
     Dates: start: 20120407, end: 20120418
  12. NEXIUM [Concomitant]
     Indication: PROPHYLAXIS
     Dosage: 10 MG, QD
     Route: 048
     Dates: start: 20120509, end: 20120515
  13. PRIMPERAN [Concomitant]
     Indication: PROPHYLAXIS
     Dosage: 5 MG, QD AS NEEDED
     Route: 048
     Dates: end: 20120518
  14. LOXOPROFEN [Concomitant]
     Indication: PROPHYLAXIS
     Dosage: 60 MG/DAY AS NEEDED
     Route: 048

REACTIONS (1)
  - Loss of consciousness [Recovered/Resolved]
